FAERS Safety Report 7220111-5 (Version None)
Quarter: 2011Q1

REPORT INFORMATION
  Report Type: 
  Country: None (occurrence: None)
  Receive Date: 20110111
  Receipt Date: 20110105
  Transmission Date: 20110831
  Serious: Yes (Hospitalization, Other)
  Sender: FDA-Public Use
  Company Number: B0692980A

PATIENT
  Age: 67 Year
  Sex: Male

DRUGS (15)
  1. TRIATEC [Concomitant]
     Dosage: 5MG PER DAY
     Route: 048
  2. FRAGMIN [Concomitant]
     Dosage: 12500U PER DAY
     Route: 058
  3. SERESTA [Concomitant]
     Route: 048
  4. HYDROCORTISON [Concomitant]
     Dosage: 10MG TWICE PER DAY
     Route: 042
  5. MINIRIN [Concomitant]
     Route: 045
  6. CONCOR [Concomitant]
     Dosage: 5MG PER DAY
     Route: 048
  7. LAMICTAL [Suspect]
     Indication: EPILEPSY
     Dosage: 50MG PER DAY
     Route: 048
     Dates: start: 20100901, end: 20101025
  8. GLUCOPHAGE [Concomitant]
     Dosage: 500MG PER DAY
     Route: 048
  9. MARCOUMAR [Concomitant]
     Route: 048
  10. ANDRIOL [Concomitant]
     Dosage: 25.2MG PER DAY
     Route: 048
  11. PRAVASTATIN [Concomitant]
     Dosage: 40MG PER DAY
     Route: 048
  12. PANTOZOL [Concomitant]
     Dosage: 40MG PER DAY
     Route: 048
  13. DIPIPERON [Concomitant]
     Dosage: 20MG FOUR TIMES PER DAY
     Route: 048
  14. EUTHYROX [Concomitant]
     Dosage: .15MG PER DAY
     Route: 048
  15. PRADIF [Concomitant]
     Dosage: 400MCG PER DAY
     Route: 048

REACTIONS (5)
  - DRY SKIN [None]
  - ACUTE GENERALISED EXANTHEMATOUS PUSTULOSIS [None]
  - PRURITUS [None]
  - SKIN EXFOLIATION [None]
  - WHITE BLOOD CELL COUNT INCREASED [None]
